FAERS Safety Report 11747906 (Version 2)
Quarter: 2015Q4

REPORT INFORMATION
  Report Type: Report from Study
  Country: DE (occurrence: DE)
  Receive Date: 20151117
  Receipt Date: 20151130
  Transmission Date: 20160304
  Serious: Yes (Death)
  Sender: FDA-Public Use
  Company Number: DE-ABBVIE-15P-062-1500213-00

PATIENT
  Sex: Female

DRUGS (1)
  1. DUODOPA [Suspect]
     Active Substance: CARBIDOPA\LEVODOPA
     Indication: PARKINSON^S DISEASE
     Dosage: MD 9 ML, CRD 3.8 ML/HR, ED 1 ML
     Route: 050
     Dates: start: 20140404, end: 20151112

REACTIONS (2)
  - Cardiovascular insufficiency [Fatal]
  - Sepsis [Fatal]
